FAERS Safety Report 21747409 (Version 1)
Quarter: 2022Q4

REPORT INFORMATION
  Report Type: Report from Study
  Country: US (occurrence: US)
  Receive Date: 20221219
  Receipt Date: 20221219
  Transmission Date: 20230112
  Serious: Yes (Other)
  Sender: FDA-Public Use
  Company Number: US-GSKCCFUS-Case-01578381_AE-89211

PATIENT

DRUGS (1)
  1. BELANTAMAB MAFODOTIN [Suspect]
     Active Substance: BELANTAMAB MAFODOTIN
     Indication: Product used for unknown indication
     Dosage: 2.5 MG/KG
     Route: 042
     Dates: start: 20221026

REACTIONS (2)
  - Corneal epithelium defect [Unknown]
  - Ocular toxicity [Unknown]

NARRATIVE: CASE EVENT DATE: 20221207
